FAERS Safety Report 10922319 (Version 4)
Quarter: 2015Q2

REPORT INFORMATION
  Report Type: Spontaneous
  Country: TW (occurrence: TW)
  Receive Date: 20150317
  Receipt Date: 20150428
  Transmission Date: 20150821
  Serious: Yes (Other)
  Sender: FDA-Public Use
  Company Number: TW-ELI_LILLY_AND_COMPANY-TW201503002287

PATIENT
  Age: 75 Year
  Sex: Female

DRUGS (1)
  1. EVISTA [Suspect]
     Active Substance: RALOXIFENE HYDROCHLORIDE
     Indication: OSTEOPOROSIS
     Dosage: UNK, UNKNOWN
     Route: 065
     Dates: start: 201403, end: 20150301

REACTIONS (7)
  - Immune system disorder [Recovering/Resolving]
  - Pleural effusion [Recovering/Resolving]
  - Sjogren^s syndrome [Unknown]
  - Ligament sprain [Recovering/Resolving]
  - Mobility decreased [Recovering/Resolving]
  - Oedema peripheral [Unknown]
  - Pericardial effusion [Unknown]

NARRATIVE: CASE EVENT DATE: 20150301
